FAERS Safety Report 6309509-7 (Version None)
Quarter: 2009Q3

REPORT INFORMATION
  Report Type: 
  Country: None (occurrence: None)
  Receive Date: 20090814
  Receipt Date: 20090810
  Transmission Date: 20100115
  Serious: No
  Sender: FDA-Public Use
  Company Number: FR-EISAI INC.-E7273-00076-SPO-FR

PATIENT
  Age: 70 Year
  Sex: Female

DRUGS (1)
  1. TARGRETIN [Suspect]
     Indication: MYCOSIS FUNGOIDES
     Route: 048

REACTIONS (2)
  - ERYTHEMA [None]
  - SKIN EXFOLIATION [None]
